FAERS Safety Report 6815325-X (Version None)
Quarter: 2010Q3

REPORT INFORMATION
  Report Type: 
  Country: None (occurrence: None)
  Receive Date: 20100702
  Receipt Date: 20100628
  Transmission Date: 20110219
  Serious: Yes (Hospitalization, Other)
  Sender: FDA-Public Use
  Company Number: FR-BRISTOL-MYERS SQUIBB COMPANY-15171473

PATIENT
  Age: 71 Year
  Sex: Male

DRUGS (9)
  1. ELISOR TABS [Suspect]
     Route: 048
     Dates: start: 20040101
  2. KENZEN [Suspect]
     Dosage: TABS
     Dates: start: 20040101
  3. TEMERIT [Suspect]
     Dosage: TEMERIT 5MG
     Route: 048
     Dates: start: 20040101
  4. ALLOPURINOL [Suspect]
     Route: 048
  5. KARDEGIC [Concomitant]
  6. PREVISCAN [Concomitant]
  7. LASIX [Concomitant]
  8. AMLOR [Concomitant]
  9. NEXIUM [Concomitant]

REACTIONS (7)
  - ACUTE RESPIRATORY DISTRESS SYNDROME [None]
  - BRONCHITIS [None]
  - CHRONIC OBSTRUCTIVE PULMONARY DISEASE [None]
  - CONGESTIVE CARDIOMYOPATHY [None]
  - INTERSTITIAL LUNG DISEASE [None]
  - PULMONARY FIBROSIS [None]
  - PULMONARY HYPERTENSION [None]
